FAERS Safety Report 8681347 (Version 2)
Quarter: 2012Q4

REPORT INFORMATION
  Report Type: 
  Country: US (occurrence: US)
  Receive Date: 20120725
  Receipt Date: 20121218
  Transmission Date: 20130627
  Serious: Yes (Hospitalization)
  Sender: FDA-Public Use
  Company Number: US-BAYER-2012-072417

PATIENT
  Age: 46 Year
  Sex: Female
  Weight: 67.12 kg

DRUGS (17)
  1. YASMIN [Suspect]
  2. ACIPHEX [Concomitant]
     Dosage: 20 mg, once to twice a day
  3. AMBIEN CR [Concomitant]
     Dosage: 12.5 mg, HS
     Route: 048
  4. AXID [Concomitant]
     Dosage: UNK UNK, PRN
     Route: 048
  5. AZITHROMYCIN [Concomitant]
     Dosage: 250 mg, UNK
  6. DIAZEPAM [Concomitant]
     Dosage: 5 mg, UNK
     Route: 048
  7. HYDROCODONE W/APAP [Concomitant]
     Dosage: 7.5/500
  8. HYDROXYZINE HCL [Concomitant]
     Dosage: 25 mg, UNK
     Route: 048
  9. IBUPROFEN [Concomitant]
     Dosage: 800 mg, UNK
  10. LIPITOR [Concomitant]
     Dosage: 10 mg, HS
  11. NEXIUM [Concomitant]
     Dosage: 40 mg, UNK
     Route: 048
  12. WELLBUTRIN SR [Concomitant]
     Dosage: 150 mg, BID
     Route: 048
  13. XANAX [Concomitant]
     Dosage: 0.5 mg, two to three times a day
     Route: 048
  14. VICODIN [Concomitant]
     Indication: PAIN
  15. MORPHINE [Concomitant]
     Indication: PAIN
  16. PROTONIX [Concomitant]
  17. TYLENOL [Concomitant]

REACTIONS (1)
  - Pulmonary embolism [Recovered/Resolved]
